APPROVED DRUG PRODUCT: BRIMONIDINE TARTRATE
Active Ingredient: BRIMONIDINE TARTRATE
Strength: 0.1%
Dosage Form/Route: SOLUTION/DROPS;OPHTHALMIC
Application: A203172 | Product #001 | TE Code: AB
Applicant: SANDOZ INC
Approved: Mar 4, 2024 | RLD: No | RS: No | Type: RX